FAERS Safety Report 7995914-X (Version None)
Quarter: 2011Q4

REPORT INFORMATION
  Report Type: 
  Country: None (occurrence: None)
  Receive Date: 20111220
  Receipt Date: 20111212
  Transmission Date: 20120403
  Serious: Yes (Other)
  Sender: FDA-Public Use
  Company Number: CHPA2011US017933

PATIENT
  Age: 70 Year
  Sex: Male

DRUGS (4)
  1. EXCEDRIN (MIGRAINE) [Suspect]
     Dosage: 4-6 CAPLETS PRN
     Route: 048
     Dates: end: 20100101
  2. EXCEDRIN (MIGRAINE) [Suspect]
     Indication: MIGRAINE
     Dosage: 4-6 TABLETS PRN
     Route: 048
     Dates: start: 20100101
  3. EXCEDRIN (MIGRAINE) [Suspect]
     Dosage: 4-6 TABLETS PRN
     Route: 048
     Dates: end: 20100101
  4. EXCEDRIN (MIGRAINE) [Suspect]
     Indication: MIGRAINE
     Dosage: 4-6 CAPLETS PRN
     Route: 048
     Dates: start: 20100101

REACTIONS (6)
  - INCORRECT DRUG ADMINISTRATION DURATION [None]
  - IMMOBILE [None]
  - DISEASE RECURRENCE [None]
  - FEELING ABNORMAL [None]
  - WRONG TECHNIQUE IN DRUG USAGE PROCESS [None]
  - DRUG EFFECT INCREASED [None]
